FAERS Safety Report 8161806-9 (Version None)
Quarter: 2012Q1

REPORT INFORMATION
  Report Type: 
  Country: None (occurrence: None)
  Receive Date: 20120224
  Receipt Date: 20120215
  Transmission Date: 20120608
  Serious: Yes (Hospitalization, Other)
  Sender: FDA-Public Use
  Company Number: US-BAYER-2012-017004

PATIENT
  Age: 32 Year
  Sex: Female
  Weight: 77.098 kg

DRUGS (4)
  1. PROPYLTHIOURACIL [Concomitant]
  2. YAZ [Suspect]
  3. YASMIN [Suspect]
  4. LOVENOX [Concomitant]

REACTIONS (9)
  - HEADACHE [None]
  - THYROTOXIC CRISIS [None]
  - GOITRE [None]
  - ANXIETY DISORDER [None]
  - HAEMORRHAGE INTRACRANIAL [None]
  - THROMBOPHLEBITIS [None]
  - HYPERCOAGULATION [None]
  - MIGRAINE [None]
  - INTRACRANIAL VENOUS SINUS THROMBOSIS [None]
